FAERS Safety Report 5457754-5 (Version None)
Quarter: 2007Q3

REPORT INFORMATION
  Report Type: 
  Country: None (occurrence: None)
  Receive Date: 20070918
  Receipt Date: 20070315
  Transmission Date: 20080115
  Serious: No
  Sender: FDA-Public Use
  Company Number: US-ASTRAZENECA-2007UW04974

PATIENT
  Sex: Female

DRUGS (2)
  1. SEROQUEL [Suspect]
     Indication: BIPOLAR DISORDER
     Route: 048
     Dates: start: 20070313, end: 20070315
  2. SEROQUEL [Suspect]
     Indication: MANIA
     Route: 048
     Dates: start: 20070313, end: 20070315

REACTIONS (3)
  - ILL-DEFINED DISORDER [None]
  - IRRITABILITY [None]
  - SOMNOLENCE [None]
